FAERS Safety Report 7075215-7 (Version None)
Quarter: 2010Q4

REPORT INFORMATION
  Report Type: 
  Country: None (occurrence: None)
  Receive Date: 20101030
  Receipt Date: 20100512
  Transmission Date: 20110411
  Serious: No
  Sender: FDA-Public Use
  Company Number: US-WYE-H15219410

PATIENT
  Sex: Male

DRUGS (1)
  1. ALAVERT D-12 [Suspect]
     Dosage: UNKNOWN
     Route: 048

REACTIONS (6)
  - ABDOMINAL DISCOMFORT [None]
  - ABDOMINAL PAIN UPPER [None]
  - ASTHENIA [None]
  - DYSGEUSIA [None]
  - DYSURIA [None]
  - NERVOUSNESS [None]
